FAERS Safety Report 7722261-3 (Version None)
Quarter: 2011Q3

REPORT INFORMATION
  Report Type: 
  Country: None (occurrence: None)
  Receive Date: 20110831
  Receipt Date: 20110819
  Transmission Date: 20111222
  Serious: Yes (Hospitalization, Other)
  Sender: FDA-Public Use
  Company Number: US-ELI_LILLY_AND_COMPANY-US201108006685

PATIENT
  Age: 35 Year
  Sex: Male

DRUGS (5)
  1. STRATTERA [Suspect]
     Dosage: 60 MG, QD
  2. XANAX [Concomitant]
  3. LAMICTAL [Concomitant]
  4. PROZAC [Suspect]
  5. STRATTERA [Suspect]
     Indication: ATTENTION DEFICIT/HYPERACTIVITY DISORDER
     Dosage: 40 MG, QD

REACTIONS (2)
  - SUICIDAL IDEATION [None]
  - SUICIDE ATTEMPT [None]
